FAERS Safety Report 16134417 (Version 3)
Quarter: 2019Q3

REPORT INFORMATION
  Report Type: Spontaneous
  Country: US (occurrence: US)
  Receive Date: 20190329
  Receipt Date: 20190924
  Transmission Date: 20191004
  Serious: No
  Sender: FDA-Public Use
  Company Number: US-BIOMARINAP-US-2019-122676

PATIENT

DRUGS (1)
  1. KUVAN [Suspect]
     Active Substance: SAPROPTERIN DIHYDROCHLORIDE
     Indication: PHENYLKETONURIA
     Dosage: UNK, QD
     Route: 048
     Dates: start: 20190320

REACTIONS (4)
  - Abdominal pain [Recovering/Resolving]
  - Headache [Recovering/Resolving]
  - Abdominal discomfort [Recovering/Resolving]
  - Nausea [Recovering/Resolving]
